FAERS Safety Report 6879556-5 (Version None)
Quarter: 2010Q3

REPORT INFORMATION
  Report Type: 
  Country: None (occurrence: None)
  Receive Date: 20100728
  Receipt Date: 20100719
  Transmission Date: 20110219
  Serious: Yes (Other)
  Sender: FDA-Public Use
  Company Number: CA-ASTRAZENECA-2010SE34081

PATIENT
  Age: 59 Year
  Sex: Female

DRUGS (8)
  1. NEXIUM [Suspect]
     Route: 048
  2. DIFLUNISAL [Suspect]
     Route: 065
  3. METHOTREXATE [Suspect]
     Route: 065
  4. PREDNISONE [Suspect]
     Route: 065
  5. PREDNISONE [Suspect]
     Route: 065
  6. PREDNISONE [Suspect]
     Route: 048
  7. PREDNISONE [Suspect]
     Route: 048
  8. PREDNISONE [Suspect]
     Route: 048

REACTIONS (18)
  - ABASIA [None]
  - ABDOMINAL PAIN UPPER [None]
  - ALOPECIA [None]
  - ARTHRITIS [None]
  - ASTHENIA [None]
  - CARPAL TUNNEL SYNDROME [None]
  - DIZZINESS [None]
  - EYE PAIN [None]
  - GAIT DISTURBANCE [None]
  - HYPOAESTHESIA [None]
  - IMPAIRED DRIVING ABILITY [None]
  - INSOMNIA [None]
  - PAIN [None]
  - PAIN IN EXTREMITY [None]
  - PARAESTHESIA [None]
  - VISION BLURRED [None]
  - VISUAL ACUITY REDUCED [None]
  - VISUAL IMPAIRMENT [None]
